FAERS Safety Report 8033777-7 (Version None)
Quarter: 2012Q1

REPORT INFORMATION
  Report Type: 
  Country: None (occurrence: None)
  Receive Date: 20120110
  Receipt Date: 20120104
  Transmission Date: 20120608
  Serious: Yes (Other)
  Sender: FDA-Public Use
  Company Number: US-PFIZER INC-2012003486

PATIENT
  Sex: Male

DRUGS (1)
  1. CHANTIX [Suspect]
     Dosage: UNK
     Dates: start: 20071015

REACTIONS (4)
  - HALLUCINATION, AUDITORY [None]
  - MENTAL DISORDER [None]
  - PARANOIA [None]
  - EMOTIONAL DISTRESS [None]
